FAERS Safety Report 4952049-8 (Version None)
Quarter: 2006Q1

REPORT INFORMATION
  Report Type: 
  Country: None (occurrence: None)
  Receive Date: 20060320
  Receipt Date: 20060306
  Transmission Date: 20060701
  Serious: Yes (Hospitalization)
  Sender: FDA-Public Use
  Company Number: 220639

PATIENT
  Age: 64 Year
  Sex: Female
  Weight: 55 kg

DRUGS (13)
  1. RITUXIMAB (RITUXIMAB) CONC FOR SOLUTION FOR INFUSION [Suspect]
     Indication: CHRONIC LYMPHOCYTIC LEUKAEMIA
     Dosage: 785 MG, Q28, INTRAVENOUS
     Route: 042
     Dates: start: 20051121
  2. RITUXIMAB (RITUXIMAB) CONC FOR SOLUTION FOR INFUSION [Suspect]
  3. FLUDARABINE [Suspect]
     Indication: CHRONIC LYMPHOCYTIC LEUKAEMIA
     Dosage: 39.25 MG, Q28D, INTRAVENOUS
     Route: 042
     Dates: start: 20051122
  4. CYCLOPHOSPHAMIDE [Suspect]
     Indication: CHRONIC LYMPHOCYTIC LEUKAEMIA
     Dosage: 392.5 MG, Q28D, INTRAVENOUS
     Route: 042
     Dates: start: 20051122
  5. ONDANSETRON [Concomitant]
  6. ALLOPURINOL [Concomitant]
  7. ICLOVIR (VALACICLOVIR) [Concomitant]
  8. BACTRIM [Concomitant]
  9. PLASMA-LYTE (ELECTROLYTE SOLUTION  NOS) [Concomitant]
  10. VENTIDE (ALBUTEROL, ALBUTEROL SULFATE, BECLOMETHASONE DIPROPIONATE) [Concomitant]
  11. SPECIAFOLDINE (FOLIC ACID) [Concomitant]
  12. FERROUS SULFATE TAB [Concomitant]
  13. SOLU-MEDROL [Concomitant]

REACTIONS (2)
  - FEBRILE NEUTROPENIA [None]
  - PLATELET COUNT DECREASED [None]
